FAERS Safety Report 11951598 (Version 1)
Quarter: 2016Q1

REPORT INFORMATION
  Report Type: Spontaneous
  Country: CA (occurrence: CA)
  Receive Date: 20160126
  Receipt Date: 20160126
  Transmission Date: 20160526
  Serious: Yes (Hospitalization)
  Sender: FDA-Public Use
  Company Number: CA-TEVA-628161ACC

PATIENT
  Age: 32 Year
  Sex: Male

DRUGS (1)
  1. CLINDAMYCIN [Suspect]
     Active Substance: CLINDAMYCIN\CLINDAMYCIN PHOSPHATE
     Indication: TONSILLITIS
     Dosage: 900 MILLIGRAM DAILY;
     Route: 048

REACTIONS (3)
  - Gastrointestinal pain [Unknown]
  - Dysuria [Unknown]
  - Lymphadenopathy [Unknown]
